FAERS Safety Report 5475863-1 (Version None)
Quarter: 2007Q3

REPORT INFORMATION
  Report Type: 
  Country: None (occurrence: None)
  Receive Date: 20070926
  Receipt Date: 20060803
  Transmission Date: 20080115
  Serious: No
  Sender: FDA-Public Use
  Company Number: 06H-163-0309555-00

PATIENT
  Age: 45 Year
  Sex: Female
  Weight: 79.3795 kg

DRUGS (2)
  1. MEPERIDINE HCL [Suspect]
     Indication: DRUG USE FOR UNKNOWN INDICATION
     Dosage: 15 MG BOLUS, INTRAVENOUS; 15MG/HR, 10MIN BOLUS LOCKOUT, 200MG/4HR, CONTINUOUS
     Route: 040
     Dates: start: 20060802, end: 20060802
  2. PHENERGAN HCL [Suspect]
     Indication: DRUG USE FOR UNKNOWN INDICATION
     Dosage: 25 MG, ONCE, INTRAVENOUS
     Route: 042
     Dates: start: 20060802, end: 20060802

REACTIONS (6)
  - DEPRESSED LEVEL OF CONSCIOUSNESS [None]
  - LETHARGY [None]
  - MEDICATION ERROR [None]
  - OVERDOSE [None]
  - RESPIRATORY DEPTH DECREASED [None]
  - RESPIRATORY DISTRESS [None]
